FAERS Safety Report 5285154-X (Version None)
Quarter: 2007Q2

REPORT INFORMATION
  Report Type: 
  Country: None (occurrence: None)
  Receive Date: 20070403
  Receipt Date: 20070322
  Transmission Date: 20071010
  Serious: Yes (Hospitalization)
  Sender: FDA-Public Use
  Company Number: FR-PFIZER INC-2006136671

PATIENT
  Sex: Male
  Weight: 75 kg

DRUGS (3)
  1. NEURONTIN [Suspect]
     Indication: PROPHYLAXIS
     Route: 048
     Dates: start: 20060101, end: 20060601
  2. NEURONTIN [Suspect]
     Indication: CONVULSION
  3. DEPAKENE [Suspect]

REACTIONS (3)
  - PANIC REACTION [None]
  - TREMOR [None]
  - VOMITING [None]
